FAERS Safety Report 7078148-5 (Version None)
Quarter: 2010Q4

REPORT INFORMATION
  Report Type: 
  Country: None (occurrence: None)
  Receive Date: 20101101
  Receipt Date: 20101101
  Transmission Date: 20110411
  Serious: No
  Sender: FDA-Public Use
  Company Number: None

PATIENT
  Sex: Male
  Weight: 106.8 kg

DRUGS (1)
  1. TUBERSOL [Suspect]
     Dates: start: 20101029

REACTIONS (1)
  - WRONG DRUG ADMINISTERED [None]
